FAERS Safety Report 8690855 (Version 2)
Quarter: 2012Q4

REPORT INFORMATION
  Report Type: 
  Country: BE (occurrence: BE)
  Receive Date: 20120730
  Receipt Date: 20121230
  Transmission Date: 20130627
  Serious: Yes (Hospitalization)
  Sender: FDA-Public Use
  Company Number: BE-AMGEN-BELSP2012046571

PATIENT
  Age: 83 Year
  Sex: Male

DRUGS (2)
  1. XGEVA [Suspect]
     Indication: METASTASES TO BONE
     Dosage: UNK
     Dates: start: 20120628
  2. CACIT                              /00751519/ [Concomitant]
     Indication: METASTASES TO BONE
     Dosage: UNK
     Dates: start: 20120628

REACTIONS (1)
  - Hypercalcaemia [Unknown]
